FAERS Safety Report 24699970 (Version 1)
Quarter: 2024Q4

REPORT INFORMATION
  Report Type: Spontaneous
  Country: US (occurrence: US)
  Receive Date: 20241205
  Receipt Date: 20241205
  Transmission Date: 20250114
  Serious: No
  Sender: ALIMERA
  Company Number: US-ALIMERA SCIENCES INC.-US-A16013-24-000484

PATIENT
  Sex: Female

DRUGS (2)
  1. YUTIQ [Suspect]
     Active Substance: FLUOCINOLONE ACETONIDE
     Indication: Birdshot chorioretinopathy
     Dosage: 0.18 MILLIGRAM, SINGLE - UNKNOWN EYE
     Route: 031
     Dates: start: 202107
  2. YUTIQ [Suspect]
     Active Substance: FLUOCINOLONE ACETONIDE
     Dosage: 0.18 MILLIGRAM, SINGLE - RIGHT EYE
     Route: 031
     Dates: start: 20240828

REACTIONS (2)
  - Eye inflammation [Unknown]
  - Drug ineffective [Unknown]
